FAERS Safety Report 18037854 (Version 1)
Quarter: 2020Q3

REPORT INFORMATION
  Report Type: Spontaneous
  Country: GB (occurrence: GB)
  Receive Date: 20200717
  Receipt Date: 20200717
  Transmission Date: 20201103
  Serious: Yes (Disabling)
  Sender: FDA-Public Use
  Company Number: GB-TEVA-2020-GB-1800903

PATIENT
  Age: 71 Year
  Sex: Female
  Weight: 68 kg

DRUGS (9)
  1. GLYCERYL TRINITRATE [Concomitant]
     Active Substance: NITROGLYCERIN
     Dosage: ONE SPRAY
     Dates: start: 20200217
  2. RAMIPRIL. [Concomitant]
     Active Substance: RAMIPRIL
     Dosage: 1 DOSAGE FORMS DAILY; TAKE AT NIGHT
     Dates: start: 20200217
  3. ATORVASTATIN [Concomitant]
     Active Substance: ATORVASTATIN
     Dosage: 1 DOSAGE FORMS DAILY; TAKE AT NIGHT
     Dates: start: 20200217, end: 20200505
  4. MONOMIL XL [Concomitant]
     Active Substance: ISOSORBIDE MONONITRATE
     Dosage: 1 DOSAGE FORMS DAILY; TAKE EACH MORNING
     Dates: start: 20200217
  5. CITALOPRAM [Concomitant]
     Active Substance: CITALOPRAM HYDROBROMIDE
     Dosage: 1 DF
     Dates: start: 20200217
  6. BISOPROLOL [Concomitant]
     Active Substance: BISOPROLOL
     Dosage: 1 DF
     Dates: start: 20200217
  7. NORMACOL [Concomitant]
     Active Substance: HERBALS\KARAYA GUM
     Dosage: TAKE FIVE TO TEN MLS TWICE DAILY
     Dates: start: 20200217
  8. SIMVASTATIN. [Suspect]
     Active Substance: SIMVASTATIN
     Dosage: 40 MILLIGRAM DAILY; TAKE AT NIGHT
     Dates: start: 20200505
  9. CARBOMERS [Concomitant]
     Dosage: USE UP TP SIX TIMES DAILY BOTH EYES
     Route: 047
     Dates: start: 20200217

REACTIONS (3)
  - Myopathy [Recovered/Resolved]
  - Myalgia [Unknown]
  - Nightmare [Recovered/Resolved]

NARRATIVE: CASE EVENT DATE: 20200623
